FAERS Safety Report 9852339 (Version 2)
Quarter: 2014Q4

REPORT INFORMATION
  Report Type: Spontaneous
  Country: US (occurrence: US)
  Receive Date: 20131226
  Receipt Date: 20141021
  Transmission Date: 20150529
  Serious: Yes (Death, Hospitalization)
  Sender: FDA-Public Use
  Company Number: PHEH2013US016346

PATIENT
  Age: 85 Year
  Sex: Female

DRUGS (2)
  1. AFINITOR [Suspect]
     Active Substance: EVEROLIMUS
     Dosage: UNK
  2. AFINITOR [Suspect]
     Active Substance: EVEROLIMUS
     Indication: BREAST CANCER
     Dosage: 2.5 MG, QD
     Dates: start: 201307

REACTIONS (15)
  - Death [Fatal]
  - Fatigue [Unknown]
  - Decreased appetite [Unknown]
  - Constipation [Unknown]
  - Epistaxis [Unknown]
  - Muscle spasms [Unknown]
  - Vomiting [Unknown]
  - Dysgeusia [Unknown]
  - Nausea [Unknown]
  - Bacterial infection [Unknown]
  - Cough [Unknown]
  - Pneumonia [Unknown]
  - Arthralgia [Unknown]
  - Dysphonia [Unknown]
  - Dyspnoea [Unknown]

NARRATIVE: CASE EVENT DATE: 20140920
